FAERS Safety Report 13181851 (Version 3)
Quarter: 2017Q3

REPORT INFORMATION
  Report Type: Spontaneous
  Country: US (occurrence: US)
  Receive Date: 20170202
  Receipt Date: 20170724
  Transmission Date: 20171127
  Serious: No
  Sender: FDA-Public Use
  Company Number: US-IMPAX LABORATORIES, INC-2016-IPXL-01503

PATIENT
  Age: 69 Year
  Sex: Female
  Weight: 42 kg

DRUGS (8)
  1. RYTARY [Suspect]
     Active Substance: CARBIDOPA\LEVODOPA
     Indication: PARKINSON^S DISEASE
     Dosage: 23.75/95 MG, ONE CAPSULE, 3 /DAY (6 AM, 3 PM, 10 PM)
     Route: 048
     Dates: start: 20161027, end: 2016
  2. RYTARY [Suspect]
     Active Substance: CARBIDOPA\LEVODOPA
     Dosage: TOOK A CAPSULE (23.75/95 MG) AT 9PM AND THEN AT 10PM (TOOK AN EXTRA DOSE)
     Route: 048
  3. RYTARY [Suspect]
     Active Substance: CARBIDOPA\LEVODOPA
     Dosage: 23.75/95 MG, ONE CAPSULE, 3 /DAY (6 AM, 12 PM, 6 PM)
     Route: 048
     Dates: start: 20161114
  4. RYTARY [Suspect]
     Active Substance: CARBIDOPA\LEVODOPA
     Dosage: 36.25/145 MG, 1 CAPSULE, 3 TIMES DAILY
     Route: 048
     Dates: start: 20170202
  5. MAGNESIUM [Concomitant]
     Active Substance: MAGNESIUM
     Indication: PRODUCT USED FOR UNKNOWN INDICATION
     Dosage: 120 MG, 2 /DAY
     Route: 065
  6. CARBIDOPA-LEVODOPA ER [Suspect]
     Active Substance: CARBIDOPA\LEVODOPA
     Indication: PARKINSON^S DISEASE
     Dosage: 25/100 MG, HALF A TABLET 3 /DAY
     Route: 065
     Dates: start: 20160708
  7. MELATONIN [Concomitant]
     Active Substance: MELATONIN
     Indication: PRODUCT USED FOR UNKNOWN INDICATION
     Dosage: 3 MG, UNK
     Route: 065
  8. CARBIDOPA-LEVODOPA ER [Suspect]
     Active Substance: CARBIDOPA\LEVODOPA
     Dosage: 25/100 MG ONE TABLET, 3 /DAY
     Route: 065
     Dates: start: 20160907, end: 20161011

REACTIONS (9)
  - Feeling abnormal [Recovering/Resolving]
  - Tremor [Not Recovered/Not Resolved]
  - Disturbance in attention [Not Recovered/Not Resolved]
  - Thinking abnormal [Unknown]
  - Fatigue [Recovering/Resolving]
  - Somnolence [Recovering/Resolving]
  - Osteoporosis [Not Recovered/Not Resolved]
  - Disorientation [Unknown]
  - Extra dose administered [Unknown]

NARRATIVE: CASE EVENT DATE: 20161128
